FAERS Safety Report 23619327 (Version 1)
Quarter: 2024Q1

REPORT INFORMATION
  Report Type: Spontaneous
  Country: GB (occurrence: GB)
  Receive Date: 20240311
  Receipt Date: 20240311
  Transmission Date: 20240410
  Serious: Yes (Hospitalization)
  Sender: FDA-Public Use
  Company Number: GB-ABBVIE-5625995

PATIENT
  Sex: Female

DRUGS (1)
  1. DALBAVANCIN HYDROCHLORIDE [Suspect]
     Active Substance: DALBAVANCIN HYDROCHLORIDE
     Indication: Hidradenitis
     Dosage: TIME INTERVAL: AS NECESSARY: FREQUENCY: EVERY 1 MONTH
     Route: 065

REACTIONS (5)
  - Living in residential institution [Unknown]
  - Off label use [Not Recovered/Not Resolved]
  - Skin lesion [Unknown]
  - Arthritis infective [Unknown]
  - Hidradenitis [Unknown]
